FAERS Safety Report 8054972-7 (Version None)
Quarter: 2012Q1

REPORT INFORMATION
  Report Type: 
  Country: None (occurrence: None)
  Receive Date: 20120119
  Receipt Date: 20120113
  Transmission Date: 20120608
  Serious: Yes (Other)
  Sender: FDA-Public Use
  Company Number: US-PFIZER INC-2012010767

PATIENT
  Sex: Female

DRUGS (5)
  1. LIPITOR [Suspect]
     Dosage: UNK
  2. RANITIDINE [Suspect]
     Dosage: UNK
  3. METOPROLOL TARTRATE [Suspect]
     Dosage: UNK
  4. PLAVIX [Suspect]
     Dosage: UNK
  5. SINGULAIR [Suspect]
     Dosage: UNK

REACTIONS (2)
  - MYOCARDIAL INFARCTION [None]
  - CROHN'S DISEASE [None]
